FAERS Safety Report 24891589 (Version 1)
Quarter: 2025Q1

REPORT INFORMATION
  Report Type: Spontaneous
  Country: GB (occurrence: GB)
  Receive Date: 20250127
  Receipt Date: 20250127
  Transmission Date: 20250408
  Serious: Yes (Other)
  Sender: PFIZER
  Company Number: None

PATIENT
  Age: 71 Year
  Sex: Female

DRUGS (2)
  1. DOXYCYCLINE [Suspect]
     Active Substance: DOXYCYCLINE
     Indication: Bronchitis bacterial
     Dosage: 100 MG, 1X/DAY
     Route: 048
     Dates: start: 20250106
  2. ALUMINIUM CHLOROHYDRATE/METHYLPREDNISOLONE/SULFUR [Concomitant]
     Indication: Urticaria chronic
     Dates: start: 20241025

REACTIONS (7)
  - Swelling of eyelid [Not Recovered/Not Resolved]
  - Swelling face [Not Recovered/Not Resolved]
  - Hypertension [Not Recovered/Not Resolved]
  - Headache [Not Recovered/Not Resolved]
  - Photopsia [Recovering/Resolving]
  - Tinnitus [Not Recovered/Not Resolved]
  - Migraine [Not Recovered/Not Resolved]

NARRATIVE: CASE EVENT DATE: 20250101
